FAERS Safety Report 19414165 (Version 2)
Quarter: 2021Q3

REPORT INFORMATION
  Report Type: Spontaneous
  Country: US (occurrence: US)
  Receive Date: 20210615
  Receipt Date: 20210818
  Transmission Date: 20211014
  Serious: No
  Sender: FDA-Public Use
  Company Number: US-SA-2021SA195062

PATIENT
  Age: 25 Year
  Sex: Female

DRUGS (1)
  1. DUPIXENT [Suspect]
     Active Substance: DUPILUMAB
     Indication: DERMATITIS ATOPIC
     Dosage: 300 MG, QOW
     Route: 058
     Dates: start: 20190731

REACTIONS (4)
  - Depression [Unknown]
  - Muscular weakness [Unknown]
  - Mental status changes [Unknown]
  - General physical condition abnormal [Unknown]

NARRATIVE: CASE EVENT DATE: 202105
